FAERS Safety Report 14563060 (Version 3)
Quarter: 2018Q1

REPORT INFORMATION
  Report Type: Spontaneous
  Country: US (occurrence: US)
  Receive Date: 20180222
  Receipt Date: 20180309
  Transmission Date: 20180509
  Serious: Yes (Hospitalization, Other)
  Sender: FDA-Public Use
  Company Number: US-SAOL THERAPEUTICS-2018SAO00220

PATIENT
  Age: 50 Year
  Sex: Male
  Weight: 99.77 kg

DRUGS (3)
  1. LIORESAL [Suspect]
     Active Substance: BACLOFEN
     Indication: SPINAL CORD INJURY
     Dosage: 760 ?G, \DAY
     Route: 037
  2. LIORESAL [Suspect]
     Active Substance: BACLOFEN
     Dosage: 12.7 ?G, \DAY MINIMUM RATE
     Route: 037
  3. LIORESAL [Suspect]
     Active Substance: BACLOFEN
     Indication: MUSCLE SPASTICITY
     Dosage: 1151 ?G, \DAY
     Route: 037

REACTIONS (6)
  - Respiratory arrest [Unknown]
  - Multimorbidity [Unknown]
  - Visual impairment [Recovered/Resolved]
  - Drug withdrawal syndrome [Recovered/Resolved]
  - Complication associated with device [Unknown]
  - Device failure [Unknown]

NARRATIVE: CASE EVENT DATE: 201802
